FAERS Safety Report 5719905-4 (Version None)
Quarter: 2008Q2

REPORT INFORMATION
  Report Type: 
  Country: None (occurrence: None)
  Receive Date: 20080424
  Receipt Date: 20080415
  Transmission Date: 20081010
  Serious: Yes (Death, Other)
  Sender: FDA-Public Use
  Company Number: 2008SP007218

PATIENT
  Sex: Male

DRUGS (2)
  1. INTEGRILIN [Suspect]
     Indication: CATHETERISATION CARDIAC
     Dosage: IV
     Route: 042
     Dates: start: 20080401, end: 20080401
  2. PLAVIX [Concomitant]

REACTIONS (4)
  - CARDIO-RESPIRATORY ARREST [None]
  - DYSPNOEA [None]
  - HAEMATEMESIS [None]
  - PULMONARY HAEMORRHAGE [None]
